FAERS Safety Report 6803241-9 (Version None)
Quarter: 2010Q2

REPORT INFORMATION
  Report Type: 
  Country: None (occurrence: None)
  Receive Date: 20100628
  Receipt Date: 20100623
  Transmission Date: 20101027
  Serious: Yes (Other)
  Sender: FDA-Public Use
  Company Number: D0067985A

PATIENT
  Sex: Female

DRUGS (1)
  1. VIANI FORTE [Suspect]
     Dosage: 1PUFF TWICE PER DAY
     Route: 055
     Dates: start: 20060101

REACTIONS (2)
  - HAEMATOMA [None]
  - HAEMORRHAGE [None]
